FAERS Safety Report 5951976-2 (Version None)
Quarter: 2008Q4

REPORT INFORMATION
  Report Type: 
  Country: None (occurrence: None)
  Receive Date: 20081113
  Receipt Date: 20071015
  Transmission Date: 20090506
  Serious: No
  Sender: FDA-Public Use
  Company Number: A0687691A

PATIENT
  Age: 73 Year
  Sex: Male

DRUGS (6)
  1. COREG [Suspect]
     Dosage: 25MG TWICE PER DAY
     Route: 048
     Dates: start: 20050101
  2. ALTACE [Concomitant]
  3. VYTORIN [Concomitant]
  4. UNKNOWN MEDICATION [Concomitant]
  5. ALLERGY SHOT [Concomitant]
  6. ADVAIR DISKUS 100/50 [Concomitant]

REACTIONS (1)
  - DIZZINESS [None]
